FAERS Safety Report 15499039 (Version 1)
Quarter: 2018Q4

REPORT INFORMATION
  Report Type: Spontaneous
  Country: GB (occurrence: GB)
  Receive Date: 20181006
  Receipt Date: 20181006
  Transmission Date: 20190205
  Serious: No
  Sender: FDA-Public Use
  Company Number: None

PATIENT
  Age: 36 Year
  Sex: Female
  Weight: 70 kg

DRUGS (6)
  1. DULOXETINE. [Suspect]
     Active Substance: DULOXETINE
     Indication: DEPRESSION
     Dates: start: 20180404, end: 20181002
  2. MULTI VITAMIN [Concomitant]
     Active Substance: VITAMINS
  3. VITAMIN B12 [Concomitant]
     Active Substance: CYANOCOBALAMIN
  4. OMEGA 3 [Concomitant]
     Active Substance: OMEGA-3 FATTY ACIDS
  5. DULOXETINE. [Suspect]
     Active Substance: DULOXETINE
     Indication: PAIN
     Dates: start: 20180404, end: 20181002
  6. MAGNESIUM [Concomitant]
     Active Substance: MAGNESIUM

REACTIONS (12)
  - Irritability [None]
  - Crying [None]
  - Neck pain [None]
  - Fatigue [None]
  - Panic attack [None]
  - Insomnia [None]
  - Vertigo [None]
  - Nausea [None]
  - Headache [None]
  - Malaise [None]
  - Facial pain [None]
  - Diarrhoea [None]

NARRATIVE: CASE EVENT DATE: 20181005
